FAERS Safety Report 17001806 (Version 2)
Quarter: 2020Q1

REPORT INFORMATION
  Report Type: Spontaneous
  Country: GB (occurrence: GB)
  Receive Date: 20191106
  Receipt Date: 20200121
  Transmission Date: 20200409
  Serious: Yes (Hospitalization, Other)
  Sender: FDA-Public Use
  Company Number: GB-MYLANLABS-2019M1105740

PATIENT
  Age: 72 Year
  Sex: Female

DRUGS (3)
  1. AMOXICILLIN/CLAVULANIC ACID [Suspect]
     Active Substance: AMOXICILLIN\CLAVULANIC ACID
     Indication: CELLULITIS
     Dosage: UNK
     Route: 065
  2. ELIQUIS [Suspect]
     Active Substance: APIXABAN
     Indication: CEREBROVASCULAR ACCIDENT PROPHYLAXIS
     Dosage: UNK, UNAVAILABLE
  3. DOXYCYCLINE. [Suspect]
     Active Substance: DOXYCYCLINE
     Indication: CELLULITIS
     Dosage: UNK
     Route: 065

REACTIONS (5)
  - Peptic ulcer [Unknown]
  - Melaena [Unknown]
  - Haematuria [Unknown]
  - Epistaxis [Unknown]
  - Cellulitis [Unknown]

NARRATIVE: CASE EVENT DATE: 20191022
